FAERS Safety Report 5530666-4 (Version None)
Quarter: 2007Q4

REPORT INFORMATION
  Report Type: 
  Country: None (occurrence: None)
  Receive Date: 20071128
  Receipt Date: 20071128
  Transmission Date: 20080405
  Serious: Yes (Hospitalization)
  Sender: FDA-Public Use
  Company Number: None

PATIENT
  Age: 50 Year
  Sex: Female

DRUGS (12)
  1. WARFARIN SODIUM [Suspect]
     Indication: AORTIC VALVE REPLACEMENT
     Dosage: 7.5 MG PO QD
     Route: 048
  2. WARFARIN SODIUM [Suspect]
     Indication: MITRAL VALVE REPLACEMENT
     Dosage: 7.5 MG PO QD
     Route: 048
  3. ASPIRIN [Suspect]
     Indication: MYOCARDIAL INFARCTION
     Dosage: 81MG
     Route: 048
  4. PLAVIX [Suspect]
     Indication: AORTIC VALVE REPLACEMENT
     Dosage: 75 MG PO QD
  5. CRESTOR [Concomitant]
  6. POTASSIUM CHLORIDE [Concomitant]
  7. FLOVENT [Concomitant]
  8. LISINOPRIL [Concomitant]
  9. NEXIUM [Concomitant]
  10. LASIX [Concomitant]
  11. INSULIN [Concomitant]
  12. METOPROLOL [Concomitant]

REACTIONS (1)
  - GASTROINTESTINAL HAEMORRHAGE [None]
